FAERS Safety Report 8292937-0 (Version None)
Quarter: 2012Q2

REPORT INFORMATION
  Report Type: 
  Country: None (occurrence: None)
  Receive Date: 20120417
  Receipt Date: 20120210
  Transmission Date: 20120825
  Serious: No
  Sender: FDA-Public Use
  Company Number: US-ASTRAZENECA-2010SE01785

PATIENT
  Age: 55 Year
  Sex: Male

DRUGS (4)
  1. METHADON HCL TAB [Suspect]
     Route: 065
  2. EFFEXOR [Concomitant]
  3. PRILOSEC [Suspect]
     Route: 048
  4. NEXIUM [Suspect]
     Route: 048

REACTIONS (8)
  - FALL [None]
  - PAIN [None]
  - ERUCTATION [None]
  - DRUG DOSE OMISSION [None]
  - CONSTIPATION [None]
  - WRIST FRACTURE [None]
  - WRONG DRUG ADMINISTERED [None]
  - GASTROOESOPHAGEAL REFLUX DISEASE [None]
